FAERS Safety Report 15568753 (Version 1)
Quarter: 2018Q4

REPORT INFORMATION
  Report Type: Spontaneous
  Country: ES (occurrence: ES)
  Receive Date: 20181031
  Receipt Date: 20181031
  Transmission Date: 20190205
  Serious: Yes (Hospitalization)
  Sender: FDA-Public Use
  Company Number: ES-ACCORD-090562

PATIENT
  Age: 61 Year
  Sex: Male
  Weight: 75 kg

DRUGS (2)
  1. BUPROPION/BUPROPION HYDROCHLORIDE [Suspect]
     Active Substance: BUPROPION HYDROCHLORIDE
     Indication: AFFECTIVE DISORDER
     Dosage: 150 MG DAILY, REDUCE THE DOSE BY HALF
     Route: 048
     Dates: start: 20171117, end: 20171128
  2. TRAZODONE [Suspect]
     Active Substance: TRAZODONE HYDROCHLORIDE
     Indication: PRODUCT USED FOR UNKNOWN INDICATION
     Dates: start: 20171116, end: 20171123

REACTIONS (3)
  - Restlessness [Recovered/Resolved]
  - Confusional state [Recovered/Resolved]
  - Clumsiness [Recovered/Resolved]

NARRATIVE: CASE EVENT DATE: 20171122
